FAERS Safety Report 5153856-1 (Version None)
Quarter: 2006Q4

REPORT INFORMATION
  Report Type: 
  Country: None (occurrence: None)
  Receive Date: 20061120
  Receipt Date: 20060728
  Transmission Date: 20070319
  Serious: Yes (Hospitalization, Other)
  Sender: FDA-Public Use
  Company Number: PHEH2006US09708

PATIENT
  Age: 57 Year
  Sex: Male

DRUGS (10)
  1. SANDOSTATIN LAR [Suspect]
     Indication: CARCINOID SYNDROME
     Dosage: 30 MG, QMO
     Dates: start: 20060530, end: 20060627
  2. LISINOPRIL [Concomitant]
  3. GLIPIZIDE [Concomitant]
  4. METFORMIN [Concomitant]
  5. TRICOR [Concomitant]
  6. LEXAPRO [Concomitant]
     Indication: ANXIETY
     Dosage: 20 MG, QD
  7. METOPROLOL TARTRATE [Concomitant]
     Dosage: 25 MG, BID
  8. NEXIUM [Concomitant]
  9. PROVIGIL [Concomitant]
     Dosage: 200 MG, QD
  10. AMBIEN [Concomitant]
     Dosage: 12.5 MG, QHS

REACTIONS (17)
  - ABDOMINAL PAIN [None]
  - ANOREXIA [None]
  - BLOOD GLUCOSE DECREASED [None]
  - CARCINOID SYNDROME [None]
  - DEHYDRATION [None]
  - DYSPNOEA [None]
  - FATIGUE [None]
  - HEPATOMEGALY [None]
  - HYPERCALCAEMIA [None]
  - MALAISE [None]
  - METASTATIC NEOPLASM [None]
  - NAUSEA [None]
  - NEUROENDOCRINE CARCINOMA [None]
  - PANCREATITIS [None]
  - PRURITUS GENERALISED [None]
  - SPLENIC VEIN THROMBOSIS [None]
  - VOMITING [None]
